FAERS Safety Report 9680902 (Version 1)
Quarter: 2013Q4

REPORT INFORMATION
  Report Type: Spontaneous
  Country: US (occurrence: None)
  Receive Date: 20131108
  Receipt Date: 20131108
  Transmission Date: 20140711
  Serious: Yes (Life-Threatening)
  Sender: FDA-Public Use
  Company Number: None

PATIENT
  Age: 88 Year
  Sex: Female

DRUGS (2)
  1. ELIQUIS [Suspect]
     Indication: ATRIAL FIBRILLATION
     Route: 048
     Dates: start: 20130708, end: 20130930
  2. RHYTHMOL [Concomitant]

REACTIONS (6)
  - Asthenia [None]
  - Asthenia [None]
  - Fall [None]
  - Anaemia [None]
  - Confusional state [None]
  - Gastrointestinal haemorrhage [None]
